FAERS Safety Report 22031957 (Version 2)
Quarter: 2023Q1

REPORT INFORMATION
  Report Type: Report from Study
  Country: US (occurrence: US)
  Receive Date: 20230224
  Receipt Date: 20230302
  Transmission Date: 20230417
  Serious: No
  Sender: FDA-Public Use
  Company Number: US-002147023-NVSC2023US037992

PATIENT
  Sex: Male

DRUGS (3)
  1. FLUOCINONIDE [Suspect]
     Active Substance: FLUOCINONIDE
     Indication: Psoriasis
     Dosage: 0.1 %
     Route: 061
  2. CALCIPOTRIENE [Suspect]
     Active Substance: CALCIPOTRIENE
     Indication: Psoriasis
     Dosage: 0.05 %
     Route: 061
  3. ASPIRIN [Suspect]
     Active Substance: ASPIRIN
     Indication: Product used for unknown indication
     Dosage: 81 MG (TABLET)
     Route: 048

REACTIONS (5)
  - Arthralgia [Unknown]
  - Joint stiffness [Unknown]
  - Joint swelling [Unknown]
  - Rash erythematous [Unknown]
  - Dactylitis [Unknown]
